FAERS Safety Report 16632924 (Version 1)
Quarter: 2019Q3

REPORT INFORMATION
  Report Type: Spontaneous
  Country: US (occurrence: US)
  Receive Date: 20190725
  Receipt Date: 20190725
  Transmission Date: 20191004
  Serious: No
  Sender: FDA-Public Use
  Company Number: US-PFIZER INC-2019315494

PATIENT
  Age: 70 Year
  Sex: Female
  Weight: 76.31 kg

DRUGS (2)
  1. IBRANCE [Suspect]
     Active Substance: PALBOCICLIB
     Indication: BREAST CANCER METASTATIC
     Dosage: 125 MG, CYCLIC (DAILY FOR THREE WEEKS THEN HAVE A WEEK OFF)
     Route: 048
     Dates: start: 201805
  2. FASLODEX [Concomitant]
     Active Substance: FULVESTRANT
     Indication: BREAST CANCER METASTATIC
     Dosage: 500 MG, UNK (EVERY FOUR WEEKS)
     Dates: start: 201805

REACTIONS (3)
  - Alopecia [Unknown]
  - Anaemia [Unknown]
  - Asthenia [Unknown]
